FAERS Safety Report 7305475-6 (Version None)
Quarter: 2011Q1

REPORT INFORMATION
  Report Type: 
  Country: None (occurrence: None)
  Receive Date: 20110210
  Receipt Date: 20110208
  Transmission Date: 20110831
  Serious: Yes (Hospitalization)
  Sender: FDA-Public Use
  Company Number: SP03328

PATIENT
  Age: 60 Year
  Sex: Female

DRUGS (10)
  1. FORTRANS [Concomitant]
  2. ATHYMIL [Concomitant]
  3. OMEPRAZOLE [Concomitant]
  4. LAXATIVES [Concomitant]
  5. OSMOPREP [Suspect]
     Indication: COLONOSCOPY
     Dosage: ORAL
     Route: 048
     Dates: start: 20101101, end: 20101101
  6. LEVOTHYROXINE SODIUM [Concomitant]
  7. CHRONADALATE [Concomitant]
  8. CO-APROVEL [Concomitant]
  9. SEROPLEX [Concomitant]
  10. PROPOLIS [Concomitant]

REACTIONS (12)
  - GASTROINTESTINAL OBSTRUCTION [None]
  - DOLICHOCOLON [None]
  - ANAEMIA [None]
  - RENAL FAILURE CHRONIC [None]
  - BACK PAIN [None]
  - TUBULOINTERSTITIAL NEPHRITIS [None]
  - NEPHROCALCINOSIS [None]
  - FAECALOMA [None]
  - DIVERTICULUM [None]
  - DIARRHOEA [None]
  - RENAL FAILURE [None]
  - CONSTIPATION [None]
